FAERS Safety Report 16185961 (Version 3)
Quarter: 2019Q2

REPORT INFORMATION
  Report Type: Spontaneous
  Country: US (occurrence: US)
  Receive Date: 20190411
  Receipt Date: 20190513
  Transmission Date: 20190711
  Serious: Yes (Hospitalization)
  Sender: FDA-Public Use
  Company Number: US-UNITED THERAPEUTICS-UNT-2019-006596

PATIENT
  Age: 59 Year
  Sex: Female
  Weight: 68.27 kg

DRUGS (2)
  1. TYVASO [Suspect]
     Active Substance: TREPROSTINIL
     Indication: PULMONARY ARTERIAL HYPERTENSION
     Dosage: 18-54 ?G, QID
     Dates: start: 20180423
  2. TYVASO [Suspect]
     Active Substance: TREPROSTINIL
     Dosage: UNK

REACTIONS (4)
  - Nausea [Unknown]
  - Dizziness [Unknown]
  - Presyncope [Unknown]
  - Influenza [Unknown]

NARRATIVE: CASE EVENT DATE: 20190402
